FAERS Safety Report 17206417 (Version 1)
Quarter: 2019Q4

REPORT INFORMATION
  Report Type: Spontaneous
  Country: JP (occurrence: JP)
  Receive Date: 20191227
  Receipt Date: 20191227
  Transmission Date: 20200122
  Serious: Yes (Hospitalization, Other)
  Sender: FDA-Public Use
  Company Number: JP-GLAXOSMITHKLINE-JP2019JPN235359

PATIENT
  Age: 23 Year
  Sex: Female
  Weight: 54 kg

DRUGS (5)
  1. LAMICTAL [Suspect]
     Active Substance: LAMOTRIGINE
     Indication: DEPRESSION
     Dosage: 25 MG, 1D
     Route: 048
     Dates: start: 20190805, end: 20190821
  2. SENIRAN [Concomitant]
     Active Substance: BROMAZEPAM
     Dosage: UNK UNK, PRN
  3. CYMBALTA [Concomitant]
     Active Substance: DULOXETINE HYDROCHLORIDE
     Dosage: UNK
  4. PAROXETINE HYDROCHLORIDE TABLETS [Concomitant]
     Active Substance: PAROXETINE HYDROCHLORIDE
     Dosage: UNK
     Route: 048
  5. FLUNITRAZEPAM TABLETS [Concomitant]
     Dosage: UNK
     Route: 048

REACTIONS (12)
  - Haemophagocytic lymphohistiocytosis [Recovered/Resolved]
  - Asthenia [Recovered/Resolved]
  - Multi-organ disorder [Recovering/Resolving]
  - Erythema [Recovered/Resolved]
  - Disseminated intravascular coagulation [Recovered/Resolved]
  - Product use in unapproved indication [Unknown]
  - Meningism [Recovered/Resolved]
  - Pain [Recovered/Resolved]
  - Gait inability [Recovered/Resolved]
  - Pyrexia [Recovering/Resolving]
  - Headache [Recovered/Resolved]
  - Meningitis aseptic [Recovered/Resolved]

NARRATIVE: CASE EVENT DATE: 201908
